FAERS Safety Report 21761071 (Version 1)
Quarter: 2022Q4

REPORT INFORMATION
  Report Type: Spontaneous
  Country: JP (occurrence: JP)
  Receive Date: 20221221
  Receipt Date: 20221221
  Transmission Date: 20230112
  Serious: Yes (Hospitalization, Other)
  Sender: FDA-Public Use
  Company Number: JP-PFIZER INC-PV202200127471

PATIENT
  Age: 73 Year
  Sex: Male

DRUGS (1)
  1. SUTENT [Suspect]
     Active Substance: SUNITINIB MALATE
     Indication: Pancreatic carcinoma metastatic
     Dosage: 25 MG, 1X/DAY (TWO WEEKS ON ONE WEEK OFF)

REACTIONS (2)
  - Bradycardia [Unknown]
  - Altered state of consciousness [Unknown]
